FAERS Safety Report 7481719-5 (Version None)
Quarter: 2011Q2

REPORT INFORMATION
  Report Type: 
  Country: None (occurrence: None)
  Receive Date: 20110516
  Receipt Date: 20110510
  Transmission Date: 20111010
  Serious: Yes (Hospitalization)
  Sender: FDA-Public Use
  Company Number: A0871176A

PATIENT
  Sex: Female
  Weight: 78.2 kg

DRUGS (1)
  1. AVANDIA [Suspect]
     Route: 048
     Dates: start: 20020101, end: 20070101

REACTIONS (4)
  - CARDIAC FAILURE CONGESTIVE [None]
  - ATRIAL FIBRILLATION [None]
  - VENTRICULAR FIBRILLATION [None]
  - STRESS FRACTURE [None]
